FAERS Safety Report 7590262-4 (Version None)
Quarter: 2011Q3

REPORT INFORMATION
  Report Type: 
  Country: None (occurrence: None)
  Receive Date: 20110705
  Receipt Date: 20110623
  Transmission Date: 20111222
  Serious: Yes (Hospitalization)
  Sender: FDA-Public Use
  Company Number: US-SANOFI-AVENTIS-2011SA040580

PATIENT
  Age: 58 Year

DRUGS (4)
  1. CAPECITABINE [Suspect]
     Indication: COLORECTAL CANCER
     Dosage: FREQUENCY: EVERY 12 HOURS FOR 5 DAYS PER WEEK
     Route: 048
     Dates: start: 20100301
  2. BEVACIZUMAB [Suspect]
     Indication: COLORECTAL CANCER
     Dosage: 5 MG/KG OVER 30-90 MINUTES PER OTHER WEEK ON DAYS 1, 15 AND 29
     Route: 042
     Dates: start: 20100301
  3. THERAPEUTIC RADIOPHARMACEUTICALS [Suspect]
     Indication: COLORECTAL CANCER
     Dosage: 50.4 GY AT 1.8 GY PER FRACTION FOR 5 DAYS PER WEEK FOR 5.5 WEEKS
     Route: 065
     Dates: start: 20100301
  4. OXALIPLATIN [Suspect]
     Indication: COLORECTAL CANCER
     Dosage: 50 MG/M2 OVER 2 HOURS EVERY WEEK ON DAYS 1, 8, 15, 22 AND 29
     Route: 042
     Dates: start: 20100301

REACTIONS (5)
  - VISION BLURRED [None]
  - CEREBRAL ISCHAEMIA [None]
  - DYSARTHRIA [None]
  - DYSPNOEA [None]
  - VENTRICULAR TACHYCARDIA [None]
